FAERS Safety Report 19688459 (Version 3)
Quarter: 2021Q3

REPORT INFORMATION
  Report Type: Spontaneous
  Country: US (occurrence: US)
  Receive Date: 20210811
  Receipt Date: 20210927
  Transmission Date: 20211014
  Serious: No
  Sender: FDA-Public Use
  Company Number: US-ASTRAZENECA-2021A646794

PATIENT
  Age: 25294 Day
  Sex: Male
  Weight: 116.1 kg

DRUGS (3)
  1. LISINOPRIL. [Concomitant]
     Active Substance: LISINOPRIL
  2. BYDUREON BCISE [Suspect]
     Active Substance: EXENATIDE
     Indication: DIABETES MELLITUS
     Route: 058
  3. METFORMIN [Concomitant]
     Active Substance: METFORMIN HYDROCHLORIDE

REACTIONS (5)
  - Device leakage [Unknown]
  - Needle issue [Unknown]
  - Blood glucose increased [Not Recovered/Not Resolved]
  - Incorrect dose administered by device [Unknown]
  - Injection site mass [Unknown]

NARRATIVE: CASE EVENT DATE: 20210725
